FAERS Safety Report 19439976 (Version 5)
Quarter: 2021Q4

REPORT INFORMATION
  Report Type: Report from Study
  Country: US (occurrence: US)
  Receive Date: 20210620
  Receipt Date: 20211112
  Transmission Date: 20220304
  Serious: Yes (Hospitalization, Other)
  Sender: FDA-Public Use
  Company Number: US-SEATTLE GENETICS-2021SGN02519

PATIENT
  Sex: Female

DRUGS (5)
  1. TUCATINIB [Suspect]
     Active Substance: TUCATINIB
     Indication: Breast cancer female
     Dosage: UNK
  2. TUCATINIB [Suspect]
     Active Substance: TUCATINIB
     Dosage: UNK
  3. TUCATINIB [Suspect]
     Active Substance: TUCATINIB
     Dosage: 300 MG, BID
     Route: 048
     Dates: start: 20210409
  4. TUCATINIB [Suspect]
     Active Substance: TUCATINIB
     Dosage: UNK
  5. METFORMIN [Concomitant]
     Active Substance: METFORMIN HYDROCHLORIDE

REACTIONS (11)
  - Pneumonia [Unknown]
  - Pain [Unknown]
  - Product physical issue [Unknown]
  - Product dose omission in error [Unknown]
  - Product taste abnormal [Unknown]
  - Migraine [Unknown]
  - Dyspnoea [Unknown]
  - Retching [Unknown]
  - Rash pruritic [Unknown]
  - Rash erythematous [Unknown]
  - Diarrhoea [Unknown]
